FAERS Safety Report 15190772 (Version 1)
Quarter: 2018Q3

REPORT INFORMATION
  Report Type: Report from Study
  Country: MW (occurrence: MW)
  Receive Date: 20180724
  Receipt Date: 20180724
  Transmission Date: 20181010
  Serious: Yes (Life-Threatening, Other)
  Sender: FDA-Public Use
  Company Number: MW-GILEAD-2018-0351226

PATIENT
  Age: 34 Year
  Sex: Male
  Weight: 67.3 kg

DRUGS (3)
  1. ETOPOSIDE. [Suspect]
     Active Substance: ETOPOSIDE
     Indication: ANTIRETROVIRAL THERAPY
     Dosage: 100 MG, UNK
     Route: 065
     Dates: start: 20150527, end: 20150916
  2. EFAVIRENZ/EMTRICITABINE/TENOFOVIR DISOPROXIL FUMARATE [Suspect]
     Active Substance: EFAVIRENZ\EMTRICITABINE\TENOFOVIR DISOPROXIL FUMARATE
     Indication: ANTIRETROVIRAL THERAPY
     Dosage: 110 MG, UNK
     Route: 065
     Dates: start: 20150527
  3. PACLITAXEL. [Suspect]
     Active Substance: PACLITAXEL
     Indication: ANTIRETROVIRAL THERAPY
     Dosage: 132.75, UNK
     Route: 065
     Dates: start: 20151201

REACTIONS (1)
  - Blood creatinine increased [Recovered/Resolved]

NARRATIVE: CASE EVENT DATE: 20160209
